FAERS Safety Report 12620771 (Version 2)
Quarter: 2016Q3

REPORT INFORMATION
  Report Type: Spontaneous
  Country: US (occurrence: US)
  Receive Date: 20160804
  Receipt Date: 20160809
  Transmission Date: 20161109
  Serious: Yes (Other)
  Sender: FDA-Public Use
  Company Number: US-HORIZON-BUP-0088-2016

PATIENT
  Age: 35 Year
  Sex: Female

DRUGS (2)
  1. BUPHENYL [Suspect]
     Active Substance: SODIUM PHENYLBUTYRATE
     Indication: ARGININOSUCCINATE SYNTHETASE DEFICIENCY
     Dosage: 17G DIVIDED 5 TIMES PER DAY
  2. ARGININE [Concomitant]
     Active Substance: ARGININE

REACTIONS (2)
  - Hyperammonaemic crisis [Recovered/Resolved]
  - Off label use [Unknown]

NARRATIVE: CASE EVENT DATE: 2016
